FAERS Safety Report 25817795 (Version 2)
Quarter: 2025Q3

REPORT INFORMATION
  Report Type: Spontaneous
  Country: US (occurrence: US)
  Receive Date: 20250918
  Receipt Date: 20250926
  Transmission Date: 20251020
  Serious: Yes (Other)
  Sender: AMGEN
  Company Number: US-AMGEN-USASP2025182929

PATIENT
  Age: 35 Year
  Sex: Female

DRUGS (3)
  1. IMDELLTRA [Suspect]
     Active Substance: TARLATAMAB-DLLE
     Indication: Small cell lung cancer recurrent
     Dosage: UNK, Q2WK (1ST DOSE), CYCLE ONE DAY ONE
     Route: 065
     Dates: start: 20250904
  2. TOCILIZUMAB [Concomitant]
     Active Substance: TOCILIZUMAB
     Route: 065
     Dates: start: 20250905
  3. OSIMERTINIB [Concomitant]
     Active Substance: OSIMERTINIB
     Indication: EGFR gene mutation
     Dates: start: 202212

REACTIONS (2)
  - Neutropenia [Unknown]
  - White blood cell count decreased [Unknown]

NARRATIVE: CASE EVENT DATE: 20250910
